FAERS Safety Report 11861925 (Version 1)
Quarter: 2015Q4

REPORT INFORMATION
  Report Type: Report from Study
  Country: BR (occurrence: BR)
  Receive Date: 20151222
  Receipt Date: 20151222
  Transmission Date: 20160305
  Serious: Yes (Other)
  Sender: FDA-Public Use
  Company Number: BR-ABBVIE-15K-020-1472155-00

PATIENT
  Sex: Female
  Weight: 83 kg

DRUGS (11)
  1. DULOXETINE. [Concomitant]
     Active Substance: DULOXETINE
     Indication: ARTHRITIS
     Route: 048
     Dates: start: 2013
  2. CLORANA [Concomitant]
     Active Substance: HYDROCHLOROTHIAZIDE
     Indication: BLOOD PRESSURE ABNORMAL
     Route: 048
     Dates: start: 1995
  3. HUMIRA [Suspect]
     Active Substance: ADALIMUMAB
     Indication: ANKYLOSING SPONDYLITIS
     Route: 058
     Dates: start: 20150401, end: 20150909
  4. OMEGA 3 [Concomitant]
     Active Substance: OMEGA-3 FATTY ACIDS
     Indication: RHEUMATIC DISORDER
  5. CALCIUM [Concomitant]
     Active Substance: CALCIUM
     Indication: MINERAL SUPPLEMENTATION
     Route: 048
     Dates: start: 20150907
  6. RELVAR [Concomitant]
     Active Substance: FLUTICASONE FUROATE\VILANTEROL TRIFENATATE
     Indication: BRONCHITIS
     Dosage: FORM OF ADMINISTRATION: INHALANT / SPRAY
     Route: 048
     Dates: start: 201503
  7. PURAN [Concomitant]
     Active Substance: LEVOTHYROXINE SODIUM
     Indication: THYROID DISORDER
     Route: 048
     Dates: start: 2000
  8. CYCLOBENZAPRINE [Concomitant]
     Active Substance: CYCLOBENZAPRINE
     Indication: SPONDYLITIS
     Route: 048
     Dates: start: 2000
  9. OMEGA 3 [Concomitant]
     Active Substance: OMEGA-3 FATTY ACIDS
     Indication: BONE DISORDER
     Route: 048
     Dates: start: 20151201
  10. LOSARTAN. [Concomitant]
     Active Substance: LOSARTAN
     Indication: BLOOD PRESSURE ABNORMAL
     Route: 048
     Dates: start: 1995
  11. FOLIC ACID. [Concomitant]
     Active Substance: FOLIC ACID
     Indication: BONE DISORDER
     Route: 048
     Dates: start: 20150907

REACTIONS (7)
  - Fatigue [Unknown]
  - Pain [Unknown]
  - Angiopathy [Unknown]
  - Cardiovascular disorder [Unknown]
  - Peripheral swelling [Not Recovered/Not Resolved]
  - Mobility decreased [Unknown]
  - Vein rupture [Unknown]

NARRATIVE: CASE EVENT DATE: 2015
